FAERS Safety Report 12689748 (Version 1)
Quarter: 2016Q3

REPORT INFORMATION
  Report Type: Spontaneous
  Country: None (occurrence: FR)
  Receive Date: 20160826
  Receipt Date: 20160826
  Transmission Date: 20161109
  Serious: Yes (Disabling)
  Sender: FDA-Public Use
  Company Number: FR-MEDAC PHARMA, INC.-1056761

PATIENT
  Age: 58 Year
  Sex: Female

DRUGS (1)
  1. METOJECT [Suspect]
     Active Substance: METHOTREXATE SODIUM
     Dates: start: 201306, end: 201306

REACTIONS (4)
  - Loss of control of legs [Unknown]
  - Headache [Unknown]
  - Nausea [Unknown]
  - Dizziness [Unknown]

NARRATIVE: CASE EVENT DATE: 201306
